FAERS Safety Report 13776982 (Version 1)
Quarter: 2017Q3

REPORT INFORMATION
  Report Type: Other
  Country: GB (occurrence: GB)
  Receive Date: 20170721
  Receipt Date: 20170721
  Transmission Date: 20171127
  Serious: Yes (Other)
  Sender: FDA-Public Use
  Company Number: GB-PERRIGO-17GB025172

PATIENT

DRUGS (4)
  1. IBUPROFEN. [Suspect]
     Active Substance: IBUPROFEN
     Indication: PYREXIA
     Dosage: 1 DF, UNK
     Route: 048
     Dates: start: 20170704, end: 20170705
  2. AMOXIL                             /00249601/ [Suspect]
     Active Substance: AMOXICILLIN
     Indication: PYREXIA
     Dosage: 1 DF, UNK
     Route: 048
     Dates: start: 20170704, end: 20170705
  3. PARACETAMOL [Suspect]
     Active Substance: ACETAMINOPHEN
     Indication: PYREXIA
     Dosage: 1 DF, QD
     Route: 048
     Dates: start: 20170705, end: 20170705
  4. ANTHISAN [Suspect]
     Active Substance: PYRILAMINE MALEATE
     Indication: RASH
     Dosage: 1 DF, TID
     Route: 061
     Dates: start: 20170705

REACTIONS (3)
  - Pruritus generalised [Not Recovered/Not Resolved]
  - Swollen tongue [Not Recovered/Not Resolved]
  - Hypersensitivity [Not Recovered/Not Resolved]

NARRATIVE: CASE EVENT DATE: 20170705
